FAERS Safety Report 4378613-5 (Version None)
Quarter: 2004Q2

REPORT INFORMATION
  Report Type: 
  Country: None (occurrence: None)
  Receive Date: 20040609
  Receipt Date: 20040524
  Transmission Date: 20050107
  Serious: Yes (Other)
  Sender: FDA-Public Use
  Company Number: US_0405103271

PATIENT
  Age: 64 Year
  Sex: Female

DRUGS (3)
  1. EVISTA [Suspect]
  2. FOSAMAX [Concomitant]
  3. MIACALCIN [Concomitant]

REACTIONS (3)
  - FOOT FRACTURE [None]
  - MOOD SWINGS [None]
  - RIB FRACTURE [None]
